FAERS Safety Report 18580963 (Version 10)
Quarter: 2025Q3

REPORT INFORMATION
  Report Type: Report from Study
  Country: US (occurrence: US)
  Receive Date: 20201204
  Receipt Date: 20250801
  Transmission Date: 20251021
  Serious: Yes (Other)
  Sender: TAKEDA
  Company Number: US-TAKEDA-2020TUS054148

PATIENT
  Age: 57 Year
  Sex: Female

DRUGS (4)
  1. PARATHYROID HORMONE [Suspect]
     Active Substance: PARATHYROID HORMONE
     Indication: Hypoparathyroidism
     Dosage: 50 MICROGRAM, QD
     Dates: start: 20170308
  2. PARATHYROID HORMONE [Suspect]
     Active Substance: PARATHYROID HORMONE
     Dosage: 50 MICROGRAM, QD
     Dates: start: 20190928
  3. PARATHYROID HORMONE [Suspect]
     Active Substance: PARATHYROID HORMONE
  4. YORVIPATH [Concomitant]
     Active Substance: PALOPEGTERIPARATIDE

REACTIONS (11)
  - Muscle spasms [Unknown]
  - Paraesthesia [Unknown]
  - Scoliosis [Unknown]
  - Device issue [Recovering/Resolving]
  - Urinary tract infection [Unknown]
  - Extraskeletal ossification [Unknown]
  - Malaise [Unknown]
  - Gastrointestinal disorder [Unknown]
  - Blood calcium decreased [Recovered/Resolved]
  - Musculoskeletal discomfort [Unknown]
  - Hypoaesthesia oral [Unknown]

NARRATIVE: CASE EVENT DATE: 20240304
